FAERS Safety Report 4579916-1 (Version None)
Quarter: 2005Q1

REPORT INFORMATION
  Report Type: 
  Country: None (occurrence: None)
  Receive Date: 20050210
  Receipt Date: 20050126
  Transmission Date: 20050727
  Serious: Yes (Death)
  Sender: FDA-Public Use
  Company Number: 2004AL000680

PATIENT
  Age: 50 Year
  Sex: Female

DRUGS (4)
  1. ALPRAZOLAM [Suspect]
     Dosage: PO
     Route: 048
  2. PROPOXYPHENE NAPSYLATE AND ACETAMINOPHEN TABLETS USP, 100 MG/650 MG (P [Suspect]
     Dosage: PO
     Route: 048
  3. BUPROPION [Suspect]
     Dosage: PO
     Route: 048
  4. QUETIAPINE FUMARATE [Suspect]
     Dosage: PO
     Route: 048

REACTIONS (13)
  - ALANINE AMINOTRANSFERASE INCREASED [None]
  - ASPARTATE AMINOTRANSFERASE INCREASED [None]
  - BLOOD CREATINE PHOSPHOKINASE INCREASED [None]
  - BLOOD UREA INCREASED [None]
  - COMA [None]
  - COMPLETED SUICIDE [None]
  - DRUG INEFFECTIVE [None]
  - ELECTROCARDIOGRAM ST SEGMENT ELEVATION [None]
  - HEPATIC STEATOSIS [None]
  - MULTIPLE DRUG OVERDOSE [None]
  - PULMONARY OEDEMA [None]
  - PUPILLARY REFLEX IMPAIRED [None]
  - SPLENOMEGALY [None]
